FAERS Safety Report 9800001 (Version 2)
Quarter: 2015Q3

REPORT INFORMATION
  Report Type: Spontaneous
  Country: US (occurrence: US)
  Receive Date: 20140106
  Receipt Date: 20150806
  Transmission Date: 20151125
  Serious: No
  Sender: FDA-Public Use
  Company Number: US-GILEAD-2010-0030852

PATIENT
  Age: 48 Year
  Sex: Female

DRUGS (13)
  1. LETAIRIS [Suspect]
     Active Substance: AMBRISENTAN
     Indication: PULMONARY ARTERIAL HYPERTENSION
     Dates: start: 20100609
  2. COMPAZINE [Concomitant]
     Active Substance: PROCHLORPERAZINE MALEATE
  3. DIAMOX SEQUELS [Concomitant]
     Active Substance: ACETAZOLAMIDE
  4. ACCOLATE [Concomitant]
     Active Substance: ZAFIRLUKAST
  5. POTASSIUM CHLORIDE. [Concomitant]
     Active Substance: POTASSIUM CHLORIDE
  6. ALBUTEROL. [Concomitant]
     Active Substance: ALBUTEROL
  7. CEFTIN [Concomitant]
     Active Substance: CEFUROXIME AXETIL
  8. ASMANEX [Concomitant]
     Active Substance: MOMETASONE FUROATE
  9. LASIX [Concomitant]
     Active Substance: FUROSEMIDE
  10. ACIPHEX [Concomitant]
     Active Substance: RABEPRAZOLE SODIUM
  11. REVATIO [Concomitant]
     Active Substance: SILDENAFIL CITRATE
  12. VERAPAMIL [Concomitant]
     Active Substance: VERAPAMIL HYDROCHLORIDE
  13. IRON [Concomitant]
     Active Substance: IRON

REACTIONS (1)
  - Anaemia [Unknown]
